FAERS Safety Report 6682920-0 (Version None)
Quarter: 2010Q2

REPORT INFORMATION
  Report Type: 
  Country: None (occurrence: None)
  Receive Date: 20100415
  Receipt Date: 20100407
  Transmission Date: 20101027
  Serious: Yes (Other)
  Sender: FDA-Public Use
  Company Number: B0647404A

PATIENT
  Age: 70 Year
  Sex: Female

DRUGS (1)
  1. TYKERB [Suspect]
     Dosage: 5TAB PER DAY
     Route: 048

REACTIONS (3)
  - CONJUNCTIVITIS [None]
  - HAEMORRHAGE [None]
  - PARONYCHIA [None]
